FAERS Safety Report 11333256 (Version 2)
Quarter: 2015Q3

REPORT INFORMATION
  Report Type: Spontaneous
  Country: US (occurrence: US)
  Receive Date: 20150803
  Receipt Date: 20150820
  Transmission Date: 20151125
  Serious: Yes (Life-Threatening, Hospitalization, Other)
  Sender: FDA-Public Use
  Company Number: US-GLAXOSMITHKLINE INC.-US2015109497

PATIENT
  Age: 61 Year
  Sex: Male
  Weight: 172.34 kg

DRUGS (10)
  1. AMLODIPINE [Concomitant]
     Active Substance: AMLODIPINE BESYLATE
  2. TANZEUM [Suspect]
     Active Substance: ALBIGLUTIDE
     Indication: TYPE 2 DIABETES MELLITUS
     Dosage: 30 MG, WE
     Dates: start: 20150701, end: 20150715
  3. FENOFIBRATE. [Concomitant]
     Active Substance: FENOFIBRATE
  4. ACTOS MET [Concomitant]
  5. NAPROSYN [Concomitant]
     Active Substance: NAPROXEN
  6. HYDROCHLOROTHIAZIDE. [Concomitant]
     Active Substance: HYDROCHLOROTHIAZIDE
  7. LOSARTAN. [Suspect]
     Active Substance: LOSARTAN
     Dosage: UNK
  8. SIMVASTATIN. [Concomitant]
     Active Substance: SIMVASTATIN
  9. LANTUS [Concomitant]
     Active Substance: INSULIN GLARGINE
  10. CARVEDILOL. [Concomitant]
     Active Substance: CARVEDILOL

REACTIONS (13)
  - Respiratory failure [Recovered/Resolved]
  - Acute myocardial infarction [Recovered/Resolved]
  - Laryngoscopy [Recovered/Resolved]
  - Myocardial necrosis marker increased [Recovered/Resolved]
  - Endotracheal intubation [Recovered/Resolved]
  - Swelling face [Recovered/Resolved]
  - Epiglottic oedema [Recovered/Resolved]
  - Tongue oedema [Recovered/Resolved]
  - Vocal cord disorder [Recovered/Resolved]
  - Angioedema [Recovered/Resolved]
  - Mechanical ventilation [Recovered/Resolved]
  - Respiratory acidosis [Recovered/Resolved]
  - Metabolic acidosis [Recovered/Resolved]

NARRATIVE: CASE EVENT DATE: 201507
